FAERS Safety Report 5681462-9 (Version None)
Quarter: 2008Q1

REPORT INFORMATION
  Report Type: 
  Country: None (occurrence: None)
  Receive Date: 20080326
  Receipt Date: 20070215
  Transmission Date: 20080703
  Serious: No
  Sender: FDA-Public Use
  Company Number: US-BAYER-US-2007-004208

PATIENT
  Age: 32 Year
  Sex: Female
  Weight: 127 kg

DRUGS (2)
  1. MIRENA [Suspect]
     Indication: CONTRACEPTION
     Route: 015
     Dates: start: 20030813, end: 20070202
  2. VITAMIN B-12 [Concomitant]
     Route: 050
     Dates: start: 20040423, end: 20040423

REACTIONS (1)
  - PREGNANCY WITH CONTRACEPTIVE DEVICE [None]
